FAERS Safety Report 10341685 (Version 2)
Quarter: 2017Q4

REPORT INFORMATION
  Report Type: Spontaneous
  Country: US (occurrence: US)
  Receive Date: 20140725
  Receipt Date: 20171011
  Transmission Date: 20180320
  Serious: Yes (Hospitalization, Congenital Anomaly, Other)
  Sender: FDA-Public Use
  Company Number: US-ELI_LILLY_AND_COMPANY-US201407006575

PATIENT
  Age: 2 Year

DRUGS (2)
  1. PROZAC [Suspect]
     Active Substance: FLUOXETINE HYDROCHLORIDE
     Indication: ANXIETY
     Dosage: 20 MG, DAILY
     Route: 064
  2. PROZAC [Suspect]
     Active Substance: FLUOXETINE HYDROCHLORIDE
     Indication: ANXIETY
     Dosage: 20 MG, DAILY
     Route: 064

REACTIONS (11)
  - Diarrhoea [Recovering/Resolving]
  - Agitation neonatal [Unknown]
  - Decreased appetite [Unknown]
  - Tricuspid valve incompetence [Unknown]
  - Cardiomegaly [Unknown]
  - Foetal exposure during pregnancy [Recovered/Resolved]
  - Pulmonary valve incompetence [Unknown]
  - Atrial septal defect [Recovered/Resolved]
  - Fallot^s tetralogy [Unknown]
  - Insomnia [Unknown]
  - Hyperhidrosis [Unknown]

NARRATIVE: CASE EVENT DATE: 200204
